FAERS Safety Report 9701408 (Version 1)
Quarter: 2013Q4

REPORT INFORMATION
  Report Type: Spontaneous
  Country: US (occurrence: US)
  Receive Date: 20131121
  Receipt Date: 20131121
  Transmission Date: 20140711
  Serious: No
  Sender: FDA-Public Use
  Company Number: US-GILEAD-2008-0016856

PATIENT
  Age: 49 Year
  Sex: Female
  Weight: 56.25 kg

DRUGS (9)
  1. LETAIRIS [Suspect]
     Indication: PULMONARY ARTERIAL HYPERTENSION
     Route: 048
     Dates: start: 20080415
  2. LOVENOX [Concomitant]
     Route: 058
  3. IPRATROPIUM/SOL ALBUTEROL [Concomitant]
     Route: 048
  4. WARFARIN [Concomitant]
     Route: 048
  5. WARFARIN [Concomitant]
     Route: 048
  6. ASTELIN NASAL SPRAY [Concomitant]
     Route: 048
  7. AZATHIOPRINE [Concomitant]
     Route: 048
  8. METOPROLOL [Concomitant]
     Route: 048
  9. FUROSEMIDE [Concomitant]
     Route: 048

REACTIONS (1)
  - Local swelling [Unknown]
